FAERS Safety Report 17970079 (Version 3)
Quarter: 2020Q3

REPORT INFORMATION
  Report Type: Spontaneous
  Country: BR (occurrence: BR)
  Receive Date: 20200701
  Receipt Date: 20200828
  Transmission Date: 20201103
  Serious: Yes (Other)
  Sender: FDA-Public Use
  Company Number: NVSC2020BR184518

PATIENT
  Age: 26 Year
  Sex: Male
  Weight: 74 kg

DRUGS (9)
  1. AVASTIN [Concomitant]
     Active Substance: BEVACIZUMAB
     Indication: COLON NEOPLASM
     Dosage: 390 MG, Q2W
     Route: 042
     Dates: start: 20200409
  2. ZARZIO 30 MU/0.5 ML SOLUTION FOR INJECTION OR INFUSION IN PRE?FILLED S [Suspect]
     Active Substance: FILGRASTIM
     Indication: NEUTROPENIA
     Dosage: 300 UNK, Q2W, 300MCG
     Route: 058
     Dates: start: 20200606
  3. FAULDFLUOR [Concomitant]
     Active Substance: FLUOROURACIL
     Indication: COLON NEOPLASM
     Dosage: 781.2 MG, Q2W
     Route: 042
     Dates: start: 20200409
  4. BEVACIZUMAB. [Concomitant]
     Active Substance: BEVACIZUMAB
     Indication: PRODUCT USED FOR UNKNOWN INDICATION
     Dosage: UNK
     Route: 065
  5. ZARZIO 30 MU/0.5 ML SOLUTION FOR INJECTION OR INFUSION IN PRE?FILLED S [Suspect]
     Active Substance: FILGRASTIM
     Dosage: 300 UNK, Q2W, 300MCG
     Route: 058
  6. FOLFOXIRI [Concomitant]
     Active Substance: FLUOROURACIL\IRINOTECAN\LEUCOVORIN\OXALIPLATIN
     Indication: PRODUCT USED FOR UNKNOWN INDICATION
     Dosage: UNK
     Route: 065
  7. TECNOTECAN [Concomitant]
     Active Substance: IRINOTECAN HYDROCHLORIDE
     Indication: COLON NEOPLASM
     Dosage: 322.425 MG, Q2W
     Route: 042
     Dates: start: 20200409
  8. TEVAOXALI [Concomitant]
     Active Substance: OXALIPLATIN
     Indication: COLON NEOPLASM
     Dosage: 166.005 MG, Q2W
     Route: 042
     Dates: start: 20200409
  9. FAULDLEUCO [Concomitant]
     Active Substance: LEUCOVORIN CALCIUM
     Indication: PRODUCT USED FOR UNKNOWN INDICATION
     Dosage: 390.6 MG, Q2W
     Route: 042

REACTIONS (2)
  - Neutropenia [Recovered/Resolved]
  - Drug ineffective [Unknown]

NARRATIVE: CASE EVENT DATE: 20200614
